FAERS Safety Report 11064403 (Version 2)
Quarter: 2015Q2

REPORT INFORMATION
  Report Type: Spontaneous
  Country: FR (occurrence: FR)
  Receive Date: 20150424
  Receipt Date: 20150604
  Transmission Date: 20150821
  Serious: Yes (Other)
  Sender: FDA-Public Use
  Company Number: FR-BAYER-2015-140914

PATIENT
  Age: 42 Year
  Sex: Female

DRUGS (4)
  1. ADCIRCA [Concomitant]
     Active Substance: TADALAFIL
  2. AMLOR [Concomitant]
     Active Substance: AMLODIPINE BESYLATE
  3. LASILIX [Concomitant]
     Active Substance: FUROSEMIDE
  4. ADEMPAS [Suspect]
     Active Substance: RIOCIGUAT
     Indication: PULMONARY ARTERIAL HYPERTENSION
     Dosage: 0.5 MG

REACTIONS (1)
  - Generalised oedema [Recovered/Resolved]
